FAERS Safety Report 6608797-7 (Version None)
Quarter: 2010Q1

REPORT INFORMATION
  Report Type: 
  Country: None (occurrence: None)
  Receive Date: 20100224
  Receipt Date: 20100224
  Transmission Date: 20100710
  Serious: No
  Sender: FDA-Public Use
  Company Number: None

PATIENT
  Age: 32 Year
  Sex: Male
  Weight: 81.6475 kg

DRUGS (7)
  1. HYDROCHLOROTHIAZIDE [Suspect]
     Dosage: 25MG D AM PO
     Route: 048
  2. ADVAIR DISKUS 100/50 [Concomitant]
  3. METOPROLOL TARTRATE [Concomitant]
  4. LICO CR [Concomitant]
  5. HYDROCHLOROTHIAZIDE [Concomitant]
  6. NAPROXEN [Concomitant]
  7. SERTRALINE HCL [Concomitant]

REACTIONS (1)
  - MUSCLE SPASMS [None]
